FAERS Safety Report 7206032-2 (Version None)
Quarter: 2010Q4

REPORT INFORMATION
  Report Type: 
  Country: None (occurrence: None)
  Receive Date: 20101220
  Receipt Date: 20101209
  Transmission Date: 20110411
  Serious: Yes (Other)
  Sender: FDA-Public Use
  Company Number: 2010MA005213

PATIENT
  Age: 63 Year
  Sex: Female

DRUGS (5)
  1. NAPROXEN [Suspect]
     Dates: start: 20101101, end: 20101203
  2. CALCICHEW D3 [Concomitant]
  3. ISPAGHULA HUSK [Concomitant]
  4. OMEPRAZOLE [Concomitant]
  5. INFLUENZA VIRUS [Concomitant]

REACTIONS (1)
  - DYSPEPSIA [None]
